FAERS Safety Report 4704460-8 (Version None)
Quarter: 2005Q2

REPORT INFORMATION
  Report Type: 
  Country: None (occurrence: None)
  Receive Date: 20050630
  Receipt Date: 20050630
  Transmission Date: 20051028
  Serious: Yes (Hospitalization)
  Sender: FDA-Public Use
  Company Number: None

PATIENT
  Sex: Male
  Weight: 19 kg

DRUGS (2)
  1. ROCEPHIN [Suspect]
     Indication: PYREXIA
     Dosage: OT INTRAVENOUS
     Route: 042
     Dates: start: 20050225, end: 20050225
  2. ROCEPHIN [Suspect]
     Indication: PYREXIA
     Dosage: OT INTRAVENOUS
     Route: 042
     Dates: start: 20050226, end: 20050226

REACTIONS (6)
  - AMMONIA ABNORMAL [None]
  - DIALYSIS [None]
  - HAEMOLYTIC ANAEMIA [None]
  - LIVER FUNCTION TEST ABNORMAL [None]
  - PYREXIA [None]
  - RENAL FAILURE [None]
